FAERS Safety Report 22641584 (Version 1)
Quarter: 2023Q2

REPORT INFORMATION
  Report Type: Spontaneous
  Country: NL (occurrence: NL)
  Receive Date: 20230626
  Receipt Date: 20230626
  Transmission Date: 20230722
  Serious: Yes (Other)
  Sender: FDA-Public Use
  Company Number: NL-SEBELA IRELAND LIMITED-2023SEB00042

PATIENT
  Sex: Female

DRUGS (1)
  1. HYDROCORTISONE [Suspect]
     Active Substance: HYDROCORTISONE
     Indication: Abnormal behaviour
     Dosage: 10 MG/M^2

REACTIONS (1)
  - Abnormal behaviour [Recovered/Resolved]
